FAERS Safety Report 23034538 (Version 1)
Quarter: 2023Q4

REPORT INFORMATION
  Report Type: Spontaneous
  Country: US (occurrence: US)
  Receive Date: 20231005
  Receipt Date: 20231005
  Transmission Date: 20240110
  Serious: No
  Sender: FDA-Public Use
  Company Number: US-MYLANLABS-2023M1096546

PATIENT
  Sex: Male

DRUGS (1)
  1. CORTIFOAM [Suspect]
     Active Substance: HYDROCORTISONE ACETATE
     Indication: Intestinal ulcer
     Dosage: 10 PERCENT, BID
     Route: 054

REACTIONS (2)
  - Off label use [Unknown]
  - Product delivery mechanism issue [Unknown]
